FAERS Safety Report 5889278-5 (Version None)
Quarter: 2008Q3

REPORT INFORMATION
  Report Type: 
  Country: None (occurrence: None)
  Receive Date: 20080917
  Receipt Date: 20080902
  Transmission Date: 20090109
  Serious: Yes (Hospitalization)
  Sender: FDA-Public Use
  Company Number: 2008001143

PATIENT
  Age: 73 Year
  Sex: Male

DRUGS (8)
  1. ERLOTINIB(ERLOTINIB HCL) (TABLET) (ERLOTINIB HCL) [Suspect]
     Indication: LUNG ADENOCARCINOMA
     Dosage: (150 MG, QD), ORAL
     Route: 048
     Dates: start: 20080131
  2. METHYCOBAL (MECOBALAMIN) [Concomitant]
  3. PREDONINE (PREDNISONE) [Concomitant]
  4. ALTAT (ROXATIDINE ACETATE HYDROCHLORIDE) [Concomitant]
  5. MOBIC [Concomitant]
  6. SENNOSIDES [Concomitant]
  7. ALESION (EPINASTINE HYDROCHLORIDE) [Concomitant]
  8. MOHRUS (KETOPROFEN) [Concomitant]

REACTIONS (3)
  - PYREXIA [None]
  - RASH [None]
  - WHITE BLOOD CELL COUNT INCREASED [None]
